FAERS Safety Report 5614871-4 (Version None)
Quarter: 2008Q1

REPORT INFORMATION
  Report Type: 
  Country: None (occurrence: None)
  Receive Date: 20080131
  Receipt Date: 20080124
  Transmission Date: 20080703
  Serious: Yes (Other)
  Sender: FDA-Public Use
  Company Number: 2007SP017155

PATIENT
  Age: 63 Year
  Sex: Female

DRUGS (4)
  1. TEMODAL [Suspect]
     Indication: GLIOBLASTOMA
     Dosage: 85 MG/M2 QD ; 150 MG/M2, QD
     Dates: end: 20070706
  2. BACTRIM [Suspect]
     Indication: ANTIFUNGAL PROPHYLAXIS
     Dates: end: 20070706
  3. NOVABAN [Concomitant]
  4. DEXAMETASON [Concomitant]

REACTIONS (5)
  - PSORIASIS [None]
  - RASH [None]
  - SKIN REACTION [None]
  - TOXIC SKIN ERUPTION [None]
  - WOUND [None]
